FAERS Safety Report 13486923 (Version 1)
Quarter: 2017Q2

REPORT INFORMATION
  Report Type: Spontaneous
  Country: US (occurrence: US)
  Receive Date: 20170426
  Receipt Date: 20170426
  Transmission Date: 20170830
  Serious: No
  Sender: FDA-Public Use
  Company Number: US-009507513-1704USA013401

PATIENT
  Age: 10 Year
  Sex: Male

DRUGS (4)
  1. ASMANEX [Suspect]
     Active Substance: MOMETASONE FUROATE
     Indication: ASTHMA
     Dosage: UNK
     Dates: start: 201701, end: 20170424
  2. CLARITIN [Concomitant]
     Active Substance: LORATADINE
  3. FLONASE [Concomitant]
     Active Substance: FLUTICASONE PROPIONATE
  4. SINGULAIR [Concomitant]
     Active Substance: MONTELUKAST SODIUM

REACTIONS (1)
  - Drug ineffective [Unknown]

NARRATIVE: CASE EVENT DATE: 2017
